FAERS Safety Report 17279793 (Version 4)
Quarter: 2020Q1

REPORT INFORMATION
  Report Type: Report from Study
  Country: IT (occurrence: IT)
  Receive Date: 20200116
  Receipt Date: 20200214
  Transmission Date: 20200409
  Serious: Yes (Death, Life-Threatening, Other)
  Sender: FDA-Public Use
  Company Number: IT-EXELIXIS-XL18419025709

PATIENT
  Age: 58 Year
  Sex: Female
  Weight: 63 kg

DRUGS (1)
  1. CABOZANTINIB [Suspect]
     Active Substance: CABOZANTINIB
     Indication: RENAL CELL CARCINOMA
     Dosage: 60 MG, QD
     Route: 048
     Dates: start: 20191104, end: 20191217

REACTIONS (8)
  - Hyperpyrexia [Recovered/Resolved]
  - Dyspnoea [Fatal]
  - Gamma-glutamyltransferase increased [Not Recovered/Not Resolved]
  - Respiratory failure [Fatal]
  - Hypertransaminasaemia [Not Recovered/Not Resolved]
  - Nausea [Not Recovered/Not Resolved]
  - Palmar-plantar erythrodysaesthesia syndrome [Not Recovered/Not Resolved]
  - Mucosal inflammation [Not Recovered/Not Resolved]

NARRATIVE: CASE EVENT DATE: 20191125
